FAERS Safety Report 5854274-0 (Version None)
Quarter: 2008Q3

REPORT INFORMATION
  Report Type: 
  Country: None (occurrence: None)
  Receive Date: 20080822
  Receipt Date: 20080814
  Transmission Date: 20090109
  Serious: Yes (Hospitalization)
  Sender: FDA-Public Use
  Company Number: US-ABBOTT-08P-163-0471209-01

PATIENT
  Sex: Male
  Weight: 168 kg

DRUGS (4)
  1. HUMIRA [Suspect]
     Indication: RHEUMATOID ARTHRITIS
     Route: 058
     Dates: start: 20010223
  2. OLMESARTAN MEDOXOMIL [Concomitant]
     Indication: HYPERTENSION
     Route: 048
     Dates: start: 20080811
  3. KETOCONAZOLE [Concomitant]
     Indication: ONYCHOMYCOSIS
     Route: 061
     Dates: start: 20070529
  4. ASCORBIC ACID [Concomitant]
     Indication: VITAMIN C
     Route: 048
     Dates: start: 20000101

REACTIONS (1)
  - NASAL CAVITY MASS [None]
